FAERS Safety Report 17743489 (Version 1)
Quarter: 2020Q2

REPORT INFORMATION
  Report Type: Spontaneous
  Country: DE (occurrence: DE)
  Receive Date: 20200505
  Receipt Date: 20200505
  Transmission Date: 20200714
  Serious: Yes (Other)
  Sender: FDA-Public Use
  Company Number: DE-B.I. PHARMACEUTICALS,INC./RIDGEFIELD-2020-MI-022164

PATIENT
  Sex: Female

DRUGS (2)
  1. VARGATEF [Suspect]
     Active Substance: NINTEDANIB
     Route: 065
  2. VARGATEF [Suspect]
     Active Substance: NINTEDANIB
     Indication: LUNG ADENOCARCINOMA
     Route: 065

REACTIONS (2)
  - Diarrhoea [Unknown]
  - Neoplasm progression [Not Recovered/Not Resolved]
